FAERS Safety Report 5805136-6 (Version None)
Quarter: 2008Q3

REPORT INFORMATION
  Report Type: 
  Country: None (occurrence: None)
  Receive Date: 20080707
  Receipt Date: 20080627
  Transmission Date: 20090109
  Serious: Yes (Other)
  Sender: FDA-Public Use
  Company Number: 163-21880-08030970

PATIENT
  Age: 39 Year
  Sex: Female

DRUGS (8)
  1. REVLIMID [Suspect]
     Indication: MULTIPLE MYELOMA
     Dosage: 10 MG, DAILY 21/28 DAYS, ORAL, 10 MG, QD FRO 21 DAYS, ORAL,
     Route: 048
     Dates: start: 20080209, end: 20080101
  2. REVLIMID [Suspect]
     Indication: MULTIPLE MYELOMA
     Dosage: 10 MG, DAILY 21/28 DAYS, ORAL, 10 MG, QD FRO 21 DAYS, ORAL,
     Route: 048
     Dates: start: 20080510
  3. REVLIMID [Suspect]
  4. ZOMETA (ZOLEDRONIC ACID) (SOLUTION) [Concomitant]
  5. OXYCODONE (OXYCODONE) (CAPSULES) [Concomitant]
  6. OXYCONTIN [Concomitant]
  7. ENULOSE (LACTULOSE) (SOLUTION) [Concomitant]
  8. METOCLOPRAM (TABLETS) [Concomitant]

REACTIONS (15)
  - BLOOD COUNT ABNORMAL [None]
  - COLITIS [None]
  - CONTUSION [None]
  - FACIAL PAIN [None]
  - FATIGUE [None]
  - GASTROINTESTINAL HAEMORRHAGE [None]
  - HYPOAESTHESIA [None]
  - LYMPHADENOPATHY [None]
  - NAUSEA [None]
  - PAIN IN EXTREMITY [None]
  - PAIN IN JAW [None]
  - PARAESTHESIA [None]
  - TOOTH DISORDER [None]
  - TOOTHACHE [None]
  - VOMITING [None]
